FAERS Safety Report 4430601-6 (Version None)
Quarter: 2004Q3

REPORT INFORMATION
  Report Type: 
  Country: None (occurrence: None)
  Receive Date: 20040818
  Receipt Date: 20040805
  Transmission Date: 20050211
  Serious: Yes (Other)
  Sender: FDA-Public Use
  Company Number: 2004040894

PATIENT
  Age: 61 Year
  Sex: Male

DRUGS (9)
  1. LIPITOR [Suspect]
     Indication: HYPERLIPIDAEMIA
     Dosage: 20 MG (20 MG, 1 IN 1 D), ORAL
     Route: 048
     Dates: start: 20011212, end: 20030626
  2. DIMEMORFAN PHOSPHATE (DIMEMORFAN PHOSPHATE) [Suspect]
     Indication: RESPIRATORY TRACT INFECTION
     Dosage: 60 MG (20 MG, 3 IN 1 D), ORAL
     Route: 048
     Dates: start: 20030519, end: 20030525
  3. ERYTHROMYCIN [Suspect]
     Indication: RESPIRATORY TRACT INFECTION
     Dosage: 300 (100 MG, 3 IN 1 D), ORAL
     Route: 048
     Dates: start: 20030530, end: 20030612
  4. ASPIRIN [Concomitant]
  5. ISOSORBIDE DINITRATE [Concomitant]
  6. FAMOTIDINE [Concomitant]
  7. TRANDOLAPRIL (TRANDOLAPRIL) [Concomitant]
  8. DILTIAZEM HYDROCHLORIDE [Concomitant]
  9. ISOSORBIDE DINITRATE [Concomitant]

REACTIONS (3)
  - CONDITION AGGRAVATED [None]
  - DIABETES MELLITUS [None]
  - GLYCOSYLATED HAEMOGLOBIN INCREASED [None]
